FAERS Safety Report 8984120 (Version 1)
Quarter: 2012Q4

REPORT INFORMATION
  Report Type: Spontaneous
  Country: US (occurrence: None)
  Receive Date: 20121213
  Receipt Date: 20121213
  Transmission Date: 20130627
  Serious: Yes (Death)
  Sender: FDA-Public Use
  Company Number: 2012-21645

PATIENT
  Age: 56 Year
  Sex: Female

DRUGS (8)
  1. BUTALBITAL/ACETAMINOPHEN/CAFFEINE [Suspect]
  2. TRAMADOL HYDROCHLORIDE AND ACETAMINOPHEN [Suspect]
  3. ZOLPIDEM TARTRATE [Suspect]
  4. CARISOPRODOL [Suspect]
  5. TEMAZEPAM [Suspect]
  6. HYDROCODONE BITARTRATE/ACETAMINOPHEN [Suspect]
  7. DIPHENHYDRAMINE [Suspect]
  8. CITALOPRAM HYDROBROMIDE [Suspect]

REACTIONS (2)
  - Toxicity to various agents [None]
  - Completed suicide [None]
